FAERS Safety Report 4372993-2 (Version None)
Quarter: 2004Q2

REPORT INFORMATION
  Report Type: 
  Country: None (occurrence: None)
  Receive Date: 20040608
  Receipt Date: 20040505
  Transmission Date: 20050107
  Serious: Yes (Death, Other)
  Sender: FDA-Public Use
  Company Number: GB-MERCK-0405USA00324

PATIENT
  Age: 66 Year
  Sex: Male

DRUGS (6)
  1. [THERAPY UNSPECIFIED] [Concomitant]
     Route: 065
  2. ACETAMINOPHEN AND PROPOXYPHENE HYDROCHLORIDE [Concomitant]
     Route: 065
  3. ATORVASTATIN CALCIUM [Suspect]
     Route: 065
  4. FUROSEMIDE [Concomitant]
     Route: 065
  5. IBUPROFEN [Concomitant]
     Route: 065
  6. PRINIVIL [Suspect]
     Indication: HYPERTENSION
     Route: 048

REACTIONS (2)
  - BRONCHOPNEUMONIA [None]
  - PEMPHIGUS [None]
